FAERS Safety Report 7570985-3 (Version None)
Quarter: 2011Q2

REPORT INFORMATION
  Report Type: 
  Country: None (occurrence: None)
  Receive Date: 20110624
  Receipt Date: 20110620
  Transmission Date: 20111010
  Serious: Yes (Other)
  Sender: FDA-Public Use
  Company Number: IT-TEVA-287154ISR

PATIENT
  Age: 12 Year
  Sex: Female

DRUGS (4)
  1. DOXORUBICIN HCL [Suspect]
  2. METHOTREXATE [Suspect]
     Dosage: UNIT DOSE- 12 G/M2
  3. CISPLATIN [Suspect]
  4. IFOSFAMIDE [Suspect]

REACTIONS (1)
  - OSTEOPOROTIC FRACTURE [None]
